FAERS Safety Report 8874468 (Version 3)
Quarter: 2013Q1

REPORT INFORMATION
  Report Type: Spontaneous
  Country: US (occurrence: US)
  Receive Date: 20121030
  Receipt Date: 20130102
  Transmission Date: 20140127
  Serious: Yes (Other)
  Sender: FDA-Public Use
  Company Number: US-PFIZER INC-2012266777

PATIENT
  Age: 77 Year
  Sex: Female

DRUGS (4)
  1. LYRICA [Suspect]
     Indication: NEUROPATHY PERIPHERAL
     Dosage: 25 MG, AT NIGHT
  2. LYRICA [Suspect]
     Dosage: 25 MG, 2X/DAY
     Route: 048
     Dates: start: 20120924, end: 20121015
  3. LISINOPRIL [Concomitant]
     Dosage: 20 MG, 1X/DAY
  4. GABAPENTIN [Concomitant]
     Dosage: UNK

REACTIONS (6)
  - Loss of consciousness [Unknown]
  - Mental disorder [Unknown]
  - Aggression [Unknown]
  - Drug ineffective [Unknown]
  - Asthenia [Unknown]
  - Feeling abnormal [Unknown]
